FAERS Safety Report 18713717 (Version 1)
Quarter: 2021Q1

REPORT INFORMATION
  Report Type: Spontaneous
  Country: US (occurrence: US)
  Receive Date: 20210107
  Receipt Date: 20210107
  Transmission Date: 20210419
  Serious: Yes (Death, Hospitalization)
  Sender: FDA-Public Use
  Company Number: US-BAYER-2021-000324

PATIENT
  Age: 55 Year
  Sex: Female

DRUGS (3)
  1. METFORMIN [Suspect]
     Active Substance: METFORMIN HYDROCHLORIDE
  2. ALCOHOL. [Suspect]
     Active Substance: ALCOHOL
  3. PARACETAMOL [Suspect]
     Active Substance: ACETAMINOPHEN

REACTIONS (2)
  - Product use issue [Fatal]
  - Toxicity to various agents [Fatal]
